FAERS Safety Report 16198671 (Version 1)
Quarter: 2019Q2

REPORT INFORMATION
  Report Type: Spontaneous
  Country: ES (occurrence: ES)
  Receive Date: 20190415
  Receipt Date: 20190415
  Transmission Date: 20190711
  Serious: Yes (Disabling)
  Sender: FDA-Public Use
  Company Number: ES-TEVA-2019-ES-1037527

PATIENT
  Age: 13 Year
  Sex: Male
  Weight: 60 kg

DRUGS (1)
  1. LANSOPRAZOL CINFA 30 MG CAPSULAS GASTRORRESISTENTES EFG, 28 C?PSULAS [Suspect]
     Active Substance: LANSOPRAZOLE
     Indication: OESOPHAGITIS
     Dosage: 60 MILLIGRAM DAILY; 2 TABLETS PER DAY FROM SEPTEMBER 2018 TO DECEMBER 2018;  1 TABLET PER DAY FROM J
     Route: 048
     Dates: start: 20180906, end: 201812

REACTIONS (5)
  - Constipation [Recovered/Resolved]
  - Abdominal pain lower [Not Recovered/Not Resolved]
  - Vomiting [Recovered/Resolved]
  - Asthenia [Not Recovered/Not Resolved]
  - Nausea [Recovered/Resolved]

NARRATIVE: CASE EVENT DATE: 20181111
